FAERS Safety Report 16828605 (Version 2)
Quarter: 2019Q4

REPORT INFORMATION
  Report Type: Spontaneous
  Country: US (occurrence: US)
  Receive Date: 20190919
  Receipt Date: 20191004
  Transmission Date: 20200122
  Serious: Yes (Other)
  Sender: FDA-Public Use
  Company Number: US-SUNOVION-2019SUN003783

PATIENT

DRUGS (1)
  1. LATUDA [Suspect]
     Active Substance: LURASIDONE HYDROCHLORIDE
     Dosage: CUTTING HIGH DOSE IN HALF
     Route: 048

REACTIONS (7)
  - Personality change [Unknown]
  - Feeling abnormal [Unknown]
  - Anger [Unknown]
  - Abnormal behaviour [Unknown]
  - Suicidal ideation [Unknown]
  - Aggression [Unknown]
  - Wrong technique in product usage process [Unknown]
